FAERS Safety Report 21447798 (Version 1)
Quarter: 2022Q4

REPORT INFORMATION
  Report Type: Spontaneous
  Country: US (occurrence: US)
  Receive Date: 20221012
  Receipt Date: 20221012
  Transmission Date: 20230113
  Serious: Yes (Hospitalization)
  Sender: FDA-Public Use
  Company Number: US-CELGENE-USA-20220303418

PATIENT
  Age: 78 Year
  Sex: Male
  Weight: 64 kg

DRUGS (8)
  1. AZACITIDINE [Suspect]
     Active Substance: AZACITIDINE
     Indication: Myelodysplastic syndrome
     Dosage: 75 MILLIGRAM/SQ. METER
     Route: 042
     Dates: start: 20210927
  2. VENETOCLAX [Suspect]
     Active Substance: VENETOCLAX
     Indication: Myelodysplastic syndrome
     Route: 048
     Dates: start: 20210927
  3. SIMVASTATIN [Concomitant]
     Active Substance: SIMVASTATIN
     Indication: Hyperlipidaemia
     Dosage: 20 MILLIGRAM
     Route: 048
     Dates: start: 20160705
  4. METOPROLOL [Concomitant]
     Active Substance: METOPROLOL
     Indication: Hyperlipidaemia
     Route: 048
     Dates: start: 20160101
  5. ALEVE [Concomitant]
     Active Substance: NAPROXEN SODIUM
     Indication: Pain
     Dosage: FREQUENCY TEXT: AS REQUIRED
     Route: 048
     Dates: start: 20211001
  6. ACYCLOVIR [Concomitant]
     Active Substance: ACYCLOVIR
     Indication: Antiviral prophylaxis
     Dosage: FREQUENCY TEXT: AS REQUIRED
     Route: 065
     Dates: start: 20210927
  7. FLUCONAZOLE [Concomitant]
     Active Substance: FLUCONAZOLE
     Indication: Antifungal prophylaxis
     Dosage: FREQUENCY TEXT: AS REQUIRED
     Route: 065
     Dates: start: 20210927
  8. LEVAQUIN [Concomitant]
     Active Substance: LEVOFLOXACIN
     Indication: Infection prophylaxis
     Dosage: FREQUENCY TEXT: AS REQUIRED
     Route: 065
     Dates: start: 20210927

REACTIONS (1)
  - Epistaxis [Recovered/Resolved]

NARRATIVE: CASE EVENT DATE: 20220228
